FAERS Safety Report 17204839 (Version 1)
Quarter: 2019Q4

REPORT INFORMATION
  Report Type: Spontaneous
  Country: HU (occurrence: HU)
  Receive Date: 20191226
  Receipt Date: 20191226
  Transmission Date: 20200122
  Serious: Yes (Hospitalization)
  Sender: FDA-Public Use
  Company Number: HU-BRISTOL-MYERS SQUIBB COMPANY-BMS-2019-121382

PATIENT
  Age: 8 Decade
  Sex: Female
  Weight: 70 kg

DRUGS (1)
  1. OPDIVO [Suspect]
     Active Substance: NIVOLUMAB
     Indication: LUNG ADENOCARCINOMA
     Dosage: STARTED 2.5 YEARS AGO AT A DOSE OF 240 MILLIGRAM, Q2WK
     Route: 042

REACTIONS (1)
  - Skin disorder [Recovering/Resolving]
